FAERS Safety Report 8380518 (Version 2)
Quarter: 2013Q1

REPORT INFORMATION
  Report Type: Report from Study
  Country: US (occurrence: US)
  Receive Date: 20120129
  Receipt Date: 20130129
  Transmission Date: 20140127
  Serious: Yes (Other)
  Sender: FDA-Public Use
  Company Number: US-ABBOTT-11P-163-0852950-00

PATIENT
  Age: 42 Year
  Sex: Female

DRUGS (10)
  1. HUMIRA 40 MG/ 0.8 ML PRE-FILLED SYRINGE [Suspect]
     Indication: PSORIATIC ARTHROPATHY
     Dates: start: 201007, end: 201204
  2. PROZAC [Concomitant]
     Indication: PRODUCT USED FOR UNKNOWN INDICATION
  3. VICODIN [Concomitant]
     Indication: PAIN
     Dosage: 7.5/750 AS NEEDED
  4. FLEXERIL [Concomitant]
     Indication: PAIN
  5. XANAX [Concomitant]
     Indication: PRODUCT USED FOR UNKNOWN INDICATION
     Dosage: AT BEDTIME
  6. ELAVIL [Concomitant]
     Indication: PRODUCT USED FOR UNKNOWN INDICATION
  7. MVI [Concomitant]
     Indication: PRODUCT USED FOR UNKNOWN INDICATION
     Dosage: DAILY
  8. VIT D [Concomitant]
     Indication: PRODUCT USED FOR UNKNOWN INDICATION
     Dosage: DAILY
  9. VITAMIN B12 [Concomitant]
     Indication: PRODUCT USED FOR UNKNOWN INDICATION
     Dosage: DAILY
  10. BIO-Q10 [Concomitant]
     Indication: PRODUCT USED FOR UNKNOWN INDICATION
     Dosage: DAILY

REACTIONS (8)
  - Ligament operation [Not Recovered/Not Resolved]
  - Headache [Recovering/Resolving]
  - Tremor [Unknown]
  - Tremor [Unknown]
  - Sensation of heaviness [Unknown]
  - Fatigue [Unknown]
  - Increased tendency to bruise [Not Recovered/Not Resolved]
  - Fungal skin infection [Recovering/Resolving]
